FAERS Safety Report 25399169 (Version 1)
Quarter: 2025Q2

REPORT INFORMATION
  Report Type: Spontaneous
  Country: JP (occurrence: JP)
  Receive Date: 20250605
  Receipt Date: 20250605
  Transmission Date: 20250717
  Serious: Yes (Hospitalization)
  Sender: GLAXOSMITHKLINE
  Company Number: JP-GSKJP-JP2025JPN067701AA

PATIENT

DRUGS (3)
  1. DAPRODUSTAT [Suspect]
     Active Substance: DAPRODUSTAT
     Indication: Nephrogenic anaemia
     Dates: start: 20250114
  2. DAPRODUSTAT [Suspect]
     Active Substance: DAPRODUSTAT
     Dates: start: 20250205
  3. ROXADUSTAT [Concomitant]
     Active Substance: ROXADUSTAT
     Indication: Nephrogenic anaemia
     Dosage: 150 MG/DOSE, 3W

REACTIONS (7)
  - Eosinophil count increased [Recovered/Resolved]
  - Pyrexia [Unknown]
  - Malaise [Unknown]
  - Inflammation [Unknown]
  - Rash [Unknown]
  - Product use issue [Unknown]
  - Off label use [Unknown]

NARRATIVE: CASE EVENT DATE: 20250205
